FAERS Safety Report 9025314 (Version 8)
Quarter: 2013Q2

REPORT INFORMATION
  Report Type: Spontaneous
  Country: US (occurrence: US)
  Receive Date: 20130122
  Receipt Date: 20130425
  Transmission Date: 20140414
  Serious: No
  Sender: FDA-Public Use
  Company Number: US-009507513-1301USA006078

PATIENT
  Age: 24 Year
  Sex: Female
  Weight: 63.95 kg

DRUGS (2)
  1. IMPLANON [Suspect]
     Dosage: UNK
     Route: 059
  2. IMPLANON [Suspect]
     Dosage: UNK
     Route: 059
     Dates: start: 20120608, end: 20130322

REACTIONS (4)
  - Device difficult to use [Unknown]
  - Device dislocation [Unknown]
  - Medical device complication [Unknown]
  - No adverse event [Unknown]
